FAERS Safety Report 4829497-X (Version None)
Quarter: 2005Q4

REPORT INFORMATION
  Report Type: 
  Country: None (occurrence: None)
  Receive Date: 20051116
  Receipt Date: 20051101
  Transmission Date: 20060501
  Serious: Yes (Other)
  Sender: FDA-Public Use
  Company Number: PHBS2005BR16174

PATIENT
  Age: 42 Year
  Sex: Male
  Weight: 58 kg

DRUGS (2)
  1. LEPONEX [Suspect]
     Indication: SCHIZOPHRENIA
     Dosage: UNK, UNK
     Route: 048
     Dates: start: 20040601
  2. LEPONEX [Suspect]
     Dosage: 100 MG/D
     Route: 048
     Dates: start: 20050901

REACTIONS (5)
  - DIARRHOEA [None]
  - DIZZINESS [None]
  - LABYRINTHITIS [None]
  - TIC [None]
  - VERTIGO [None]
